FAERS Safety Report 5419669-8 (Version None)
Quarter: 2007Q3

REPORT INFORMATION
  Report Type: 
  Country: None (occurrence: None)
  Receive Date: 20070820
  Receipt Date: 20070820
  Transmission Date: 20080115
  Serious: Yes (Other)
  Sender: FDA-Public Use
  Company Number: SE-BRISTOL-MYERS SQUIBB COMPANY-13875372

PATIENT
  Age: 77 Year
  Sex: Female

DRUGS (2)
  1. HYDROXYUREA [Suspect]
     Dates: start: 20030901
  2. DUROFERON [Suspect]
     Indication: ANAEMIA
     Dates: start: 20061101, end: 20061201

REACTIONS (2)
  - ANAEMIA [None]
  - THROMBOCYTHAEMIA [None]
